FAERS Safety Report 7238196-9 (Version None)
Quarter: 2011Q1

REPORT INFORMATION
  Report Type: 
  Country: None (occurrence: None)
  Receive Date: 20110121
  Receipt Date: 20110106
  Transmission Date: 20110831
  Serious: No
  Sender: FDA-Public Use
  Company Number: US-PFIZER INC-2011004714

PATIENT
  Sex: Female

DRUGS (1)
  1. ADVIL [Suspect]
     Indication: DISCOMFORT
     Dosage: 1 TAB OCCASIONALLY
     Route: 048

REACTIONS (2)
  - RASH [None]
  - SUNBURN [None]
